FAERS Safety Report 4839857-9 (Version None)
Quarter: 2005Q4

REPORT INFORMATION
  Report Type: 
  Country: None (occurrence: None)
  Receive Date: 20051129
  Receipt Date: 20050830
  Transmission Date: 20060501
  Serious: Yes (Other)
  Sender: FDA-Public Use
  Company Number: US-ROCHE-416261

PATIENT
  Age: 52 Year
  Sex: Female

DRUGS (4)
  1. PEGASYS [Suspect]
     Dosage: DOSING AMOUNT ALSO REPORTED AS 0.5 ML.
     Route: 058
     Dates: start: 20050716
  2. COPEGUS [Suspect]
     Dosage: 3 TAKEN AM AND 2 TAKEN PM EACH DAY.
     Route: 048
     Dates: start: 20050716
  3. ARIMIDEX [Concomitant]
     Indication: BREAST CANCER
  4. LEXAPRO [Concomitant]
     Indication: DEPRESSION
     Route: 048

REACTIONS (9)
  - ANAEMIA [None]
  - ANOREXIA [None]
  - CONTUSION [None]
  - DENTAL CARIES [None]
  - DRY SKIN [None]
  - INJECTION SITE REACTION [None]
  - NEURALGIA [None]
  - PRURITUS [None]
  - WEIGHT DECREASED [None]
